FAERS Safety Report 5371626-6 (Version None)
Quarter: 2007Q2

REPORT INFORMATION
  Report Type: 
  Country: None (occurrence: None)
  Receive Date: 20070627
  Receipt Date: 20070618
  Transmission Date: 20071010
  Serious: Yes (Hospitalization)
  Sender: FDA-Public Use
  Company Number: PHHO2006BE19902

PATIENT
  Age: 57 Year
  Sex: Male
  Weight: 76.1 kg

DRUGS (11)
  1. CYA + STEROID FREE VS RAD + ERL [Suspect]
     Indication: RENAL TRANSPLANT
     Dosage: 1.75 MG / DAY
     Route: 048
     Dates: start: 20060808
  2. CYA + STEROID FREE VS RAD + ERL [Suspect]
     Dosage: 1 MG, BID
     Route: 048
  3. NEORAL [Suspect]
     Indication: RENAL TRANSPLANT
     Dosage: 100 MG / DAY
     Route: 048
     Dates: start: 20060808
  4. MEDROL [Concomitant]
  5. BACTRIM DS [Concomitant]
  6. ALPHA [Concomitant]
  7. ZANTAC [Concomitant]
  8. AMLODIPINE [Concomitant]
  9. LIPITOR [Concomitant]
  10. METOPROLOL SUCCINATE [Concomitant]
  11. CALCIUM CARBONATE [Concomitant]

REACTIONS (11)
  - CHRONIC ALLOGRAFT NEPHROPATHY [None]
  - CYST [None]
  - CYST REMOVAL [None]
  - ESCHERICHIA INFECTION [None]
  - HYDRONEPHROSIS [None]
  - INFLAMMATION [None]
  - LYMPHOCELE [None]
  - LYMPHOCELE MARSUPIALISATION [None]
  - PYREXIA [None]
  - RENAL ARTERIOSCLEROSIS [None]
  - URINARY TRACT INFECTION [None]
